FAERS Safety Report 5447465-4 (Version None)
Quarter: 2007Q3

REPORT INFORMATION
  Report Type: 
  Country: None (occurrence: None)
  Receive Date: 20070905
  Receipt Date: 20070905
  Transmission Date: 20080115
  Serious: Yes (Other)
  Sender: FDA-Public Use
  Company Number: None

PATIENT
  Sex: Female
  Weight: 88.4514 kg

DRUGS (2)
  1. ACTOS [Suspect]
     Indication: DIABETES MELLITUS
     Dosage: 1 DAILY PO
     Route: 048
     Dates: start: 20050101, end: 20070815
  2. GLIMPIRIDE [Concomitant]

REACTIONS (4)
  - BLOOD PRESSURE DECREASED [None]
  - HEART RATE DECREASED [None]
  - PRESYNCOPE [None]
  - WEIGHT DECREASED [None]
